FAERS Safety Report 4994832-9 (Version None)
Quarter: 2006Q2

REPORT INFORMATION
  Report Type: 
  Country: None (occurrence: None)
  Receive Date: 20060508
  Receipt Date: 20060308
  Transmission Date: 20061013
  Serious: Yes (Hospitalization)
  Sender: FDA-Public Use
  Company Number: PHRM2006AU01036

PATIENT

DRUGS (2)
  1. LEVODOPA [Concomitant]
  2. COMTAN [Suspect]

REACTIONS (2)
  - DELUSION [None]
  - NIGHTMARE [None]
